FAERS Safety Report 6995218-8 (Version None)
Quarter: 2010Q3

REPORT INFORMATION
  Report Type: 
  Country: None (occurrence: None)
  Receive Date: 20100915
  Receipt Date: 20100909
  Transmission Date: 20110219
  Serious: Yes (Hospitalization)
  Sender: FDA-Public Use
  Company Number: UTC-001422

PATIENT
  Sex: Female
  Weight: 72.6 kg

DRUGS (11)
  1. REMODULIN [Suspect]
     Indication: PULMONARY ARTERIAL HYPERTENSION
     Dosage: 75.6 UG/KG (0.0525 UG/KG, 1 IN 1 MIN) SUBCUTANEOUS
     Route: 058
     Dates: start: 20020618
  2. WARFARIN SODIUM [Suspect]
     Dosage: 1.5 MG (1.5 MG, 1 IN 1 D)
     Dates: start: 20020218, end: 20100905
  3. CELLCEPT [Concomitant]
  4. LANOXIN [Concomitant]
  5. LASIX [Concomitant]
  6. LETAIRIS (AMBRISENTAN) [Concomitant]
  7. METFORMIN HCL [Concomitant]
  8. POTASSIUM CHLORIDE [Concomitant]
  9. TOPROL-XL [Concomitant]
  10. ACETAMINOPHEN [Concomitant]
  11. ULTRAM [Concomitant]

REACTIONS (1)
  - EPISTAXIS [None]
